FAERS Safety Report 8184616-5 (Version None)
Quarter: 2012Q1

REPORT INFORMATION
  Report Type: 
  Country: None (occurrence: None)
  Receive Date: 20120305
  Receipt Date: 20120221
  Transmission Date: 20120608
  Serious: Yes (Hospitalization, Other)
  Sender: FDA-Public Use
  Company Number: US-PFIZER INC-2012054516

PATIENT
  Age: 77 Year
  Sex: Female
  Weight: 70.31 kg

DRUGS (4)
  1. IBUPROFEN [Suspect]
     Indication: ARTHRITIS
     Route: 048
     Dates: start: 20090101, end: 20110827
  2. IBUPROFEN [Suspect]
     Indication: VASCULAR HEADACHE
     Route: 048
     Dates: start: 20090101, end: 20110827
  3. DONNATAL [Concomitant]
     Indication: GASTROOESOPHAGEAL REFLUX DISEASE
     Route: 065
  4. CIMETIDINE [Concomitant]
     Indication: GASTROOESOPHAGEAL REFLUX DISEASE
     Route: 065

REACTIONS (3)
  - MYOCARDIAL INFARCTION [None]
  - GASTRIC HAEMORRHAGE [None]
  - INTENTIONAL DRUG MISUSE [None]
